FAERS Safety Report 8438975-6 (Version None)
Quarter: 2012Q2

REPORT INFORMATION
  Report Type: 
  Country: None (occurrence: None)
  Receive Date: 20120615
  Receipt Date: 20120607
  Transmission Date: 20120825
  Serious: Yes (Other)
  Sender: FDA-Public Use
  Company Number: US-CELGENEUS-163-21880-12061199

PATIENT
  Sex: Female
  Weight: 58.112 kg

DRUGS (1)
  1. REVLIMID [Suspect]
     Indication: MYELODYSPLASTIC SYNDROME
     Dosage: 10 MILLIGRAM
     Route: 048
     Dates: start: 20120501

REACTIONS (2)
  - CEREBROVASCULAR ACCIDENT [None]
  - OCULAR RETROBULBAR HAEMORRHAGE [None]
